FAERS Safety Report 9918448 (Version 1)
Quarter: 2014Q1

REPORT INFORMATION
  Report Type: Spontaneous
  Country: US (occurrence: US)
  Receive Date: 20140224
  Receipt Date: 20140224
  Transmission Date: 20141002
  Serious: Yes (Hospitalization)
  Sender: FDA-Public Use
  Company Number: US-BIOGENIDEC-2014BI015176

PATIENT
  Age: 41 Year
  Sex: Female

DRUGS (1)
  1. TECFIDERA [Suspect]
     Indication: MULTIPLE SCLEROSIS
     Dates: start: 20130521, end: 20130604

REACTIONS (12)
  - Dehydration [Unknown]
  - Diarrhoea [Unknown]
  - Vomiting [Unknown]
  - Gastrointestinal disorder [Unknown]
  - Functional gastrointestinal disorder [Unknown]
  - Gastrointestinal obstruction [Unknown]
  - Swelling face [Unknown]
  - Lip swelling [Unknown]
  - Eyelid oedema [Unknown]
  - Rash [Unknown]
  - Nausea [Unknown]
  - Multiple sclerosis [Unknown]
